FAERS Safety Report 4725409-8 (Version None)
Quarter: 2005Q3

REPORT INFORMATION
  Report Type: 
  Country: None (occurrence: None)
  Receive Date: 20050721
  Receipt Date: 20050602
  Transmission Date: 20060218
  Serious: No
  Sender: FDA-Public Use
  Company Number: 2005SP001163

PATIENT
  Age: 54 Year
  Sex: Male
  Weight: 73.9363 kg

DRUGS (1)
  1. LUNESTA [Suspect]
     Dosage: 3 MG;ORAL
     Route: 048
     Dates: start: 20050601

REACTIONS (1)
  - PARADOXICAL DRUG REACTION [None]
